FAERS Safety Report 6528594-0 (Version None)
Quarter: 2010Q1

REPORT INFORMATION
  Report Type: 
  Country: None (occurrence: None)
  Receive Date: 20100106
  Receipt Date: 20100104
  Transmission Date: 20100710
  Serious: Yes (Death, Other)
  Sender: FDA-Public Use
  Company Number: PHBS2007US07329

PATIENT
  Age: 66 Year
  Sex: Male

DRUGS (13)
  1. CYCLOSPORINE [Interacting]
     Indication: HEART TRANSPLANT
     Dosage: 150 MG/DAY
     Route: 065
  2. SIMVASTATIN [Interacting]
     Indication: HYPERLIPIDAEMIA
     Dosage: 10 MG/D
     Route: 065
  3. SIMVASTATIN [Interacting]
     Dosage: 30 MG DAILY
  4. SIMVASTATIN [Interacting]
     Dosage: 60 MG/D
     Route: 065
  5. COLCHICINE [Interacting]
     Indication: GOUT
     Dosage: 0.6 MG, QD
     Route: 065
  6. COLCHICINE [Interacting]
     Dosage: 0.6 MG, BID
     Route: 065
  7. PROPOFOL [Suspect]
     Indication: SEDATION
     Dosage: 30 UG/KG PER MIN
  8. METHYLPREDNISOLONE [Suspect]
     Indication: POLYMYOSITIS
     Dosage: 500 MG/DAY
  9. MYCOPHENOLIC ACID [Concomitant]
     Indication: HEART TRANSPLANT
     Route: 065
  10. ALLOPURINOL [Concomitant]
  11. PREDNISONE [Concomitant]
     Indication: HEART TRANSPLANT
     Dosage: 7.5 MG, UNK
     Route: 065
  12. PREDNISONE [Concomitant]
     Dosage: 30 MG, UNK
  13. IMURAN [Concomitant]

REACTIONS (36)
  - BLOOD CREATINE PHOSPHOKINASE INCREASED [None]
  - BLOOD URIC ACID INCREASED [None]
  - BODY TEMPERATURE INCREASED [None]
  - CARDIAC FAILURE CONGESTIVE [None]
  - CHRONIC OBSTRUCTIVE PULMONARY DISEASE [None]
  - DIABETES MELLITUS [None]
  - DIABETIC NEUROPATHY [None]
  - DIASTOLIC DYSFUNCTION [None]
  - DRUG INTERACTION [None]
  - ELECTROMYOGRAM ABNORMAL [None]
  - GAIT DISTURBANCE [None]
  - GOUT [None]
  - GOUTY TOPHUS [None]
  - GRIP STRENGTH DECREASED [None]
  - HAEMODIALYSIS [None]
  - HYPERLIPIDAEMIA [None]
  - HYPOREFLEXIA [None]
  - MECHANICAL VENTILATION [None]
  - MITOCHONDRIAL MYOPATHY ACQUIRED [None]
  - MUSCLE DISORDER [None]
  - MUSCLE NECROSIS [None]
  - MUSCULAR WEAKNESS [None]
  - MYALGIA [None]
  - MYOPATHY TOXIC [None]
  - OLIGURIA [None]
  - OPHTHALMOPLEGIA [None]
  - PNEUMONIA [None]
  - QUADRIPLEGIA [None]
  - RESPIRATORY DISTRESS [None]
  - RESPIRATORY RATE INCREASED [None]
  - RHABDOMYOLYSIS [None]
  - SEPSIS [None]
  - SEPTIC SHOCK [None]
  - SLEEP APNOEA SYNDROME [None]
  - URINARY CASTS [None]
  - WEIGHT DECREASED [None]
